FAERS Safety Report 18316036 (Version 1)
Quarter: 2020Q3

REPORT INFORMATION
  Report Type: Other
  Country: CA (occurrence: CA)
  Receive Date: 20200927
  Receipt Date: 20200927
  Transmission Date: 20201103
  Serious: Yes (Other)
  Sender: FDA-Public Use
  Company Number: CA-CELLTRION INC.-2020CA027073

PATIENT

DRUGS (16)
  1. RITUXIMAB (UNKNOWN) [Suspect]
     Active Substance: RITUXIMAB
     Indication: ARTHRITIS
     Dosage: 1000 MG
     Route: 042
  2. ACTEMRA [Suspect]
     Active Substance: TOCILIZUMAB
     Indication: STILL^S DISEASE
     Dosage: 162 MG, Q2WEEKS
     Route: 058
  3. PANTOPRAZOLE [Concomitant]
     Active Substance: PANTOPRAZOLE
  4. ROSUVASTATIN CALCIUM. [Concomitant]
     Active Substance: ROSUVASTATIN CALCIUM
  5. TESTOSTERONE. [Concomitant]
     Active Substance: TESTOSTERONE
     Route: 065
  6. WARFARIN [Concomitant]
     Active Substance: WARFARIN
  7. DRONABINOL. [Concomitant]
     Active Substance: DRONABINOL
  8. PREDNISONE. [Concomitant]
     Active Substance: PREDNISONE
  9. ACTEMRA [Suspect]
     Active Substance: TOCILIZUMAB
     Indication: STILL^S DISEASE
     Dosage: 162 MG, 1/WEEK
     Route: 058
  10. MAGNESIUM [Concomitant]
     Active Substance: MAGNESIUM
  11. SYMBICORT [Concomitant]
     Active Substance: BUDESONIDE\FORMOTEROL FUMARATE DIHYDRATE
     Route: 065
  12. SALBUTAMOL [Concomitant]
     Active Substance: ALBUTEROL
     Route: 065
  13. FOLIC ACID. [Concomitant]
     Active Substance: FOLIC ACID
  14. PRASTERONE [Concomitant]
     Active Substance: PRASTERONE
  15. ALENDRONATE SODIUM. [Concomitant]
     Active Substance: ALENDRONATE SODIUM
  16. AVAMYS [Concomitant]
     Active Substance: FLUTICASONE FUROATE
     Route: 065

REACTIONS (2)
  - Rectal cancer [Unknown]
  - Drug ineffective [Unknown]
